FAERS Safety Report 5288787-X (Version None)
Quarter: 2007Q2

REPORT INFORMATION
  Report Type: 
  Country: None (occurrence: None)
  Receive Date: 20070405
  Receipt Date: 20070326
  Transmission Date: 20071010
  Serious: Yes (Hospitalization)
  Sender: FDA-Public Use
  Company Number: FR-ELI_LILLY_AND_COMPANY-FR200703005151

PATIENT
  Age: 53 Year
  Sex: Female

DRUGS (4)
  1. PROZAC [Suspect]
     Dosage: UNK, UNKNOWN
     Route: 048
     Dates: end: 20070130
  2. EFFEXOR [Concomitant]
     Dosage: 75 MG, DAILY (1/D)
     Route: 048
     Dates: start: 20070131, end: 20070201
  3. TENORMIN [Concomitant]
     Indication: HYPERTENSION
     Dosage: UNK, UNKNOWN
     Route: 065
     Dates: end: 20061001
  4. LOZOL [Concomitant]
     Indication: HYPERTENSION
     Dosage: UNK, UNKNOWN
     Route: 065
     Dates: start: 20061001, end: 20070129

REACTIONS (1)
  - MENINGORRHAGIA [None]
